FAERS Safety Report 6755816-3 (Version None)
Quarter: 2010Q2

REPORT INFORMATION
  Report Type: 
  Country: None (occurrence: None)
  Receive Date: 20100604
  Receipt Date: 20100531
  Transmission Date: 20101027
  Serious: Yes (Death)
  Sender: FDA-Public Use
  Company Number: SG-ASTRAZENECA-2010SE25074

PATIENT
  Age: 70 Year

DRUGS (1)
  1. MEROPENEM [Suspect]
     Indication: BURKHOLDERIA PSEUDOMALLEI INFECTION
     Route: 042

REACTIONS (1)
  - DRUG INEFFECTIVE [None]
